FAERS Safety Report 8022627-0 (Version None)
Quarter: 2012Q1

REPORT INFORMATION
  Report Type: 
  Country: None (occurrence: None)
  Receive Date: 20120104
  Receipt Date: 20111227
  Transmission Date: 20120608
  Serious: Yes (Other)
  Sender: FDA-Public Use
  Company Number: JP-GLAXOSMITHKLINE-B0771998A

PATIENT
  Age: 3 Decade
  Sex: Female

DRUGS (2)
  1. PAXIL [Suspect]
     Indication: SOCIAL PHOBIA
     Route: 065
  2. SEPAZON [Concomitant]
     Route: 048

REACTIONS (10)
  - HALLUCINATION, AUDITORY [None]
  - MUSCULOSKELETAL STIFFNESS [None]
  - NAUSEA [None]
  - DIZZINESS [None]
  - ASTHENIA [None]
  - DRUG WITHDRAWAL SYNDROME [None]
  - ABDOMINAL PAIN UPPER [None]
  - DEPRESSED MOOD [None]
  - TEARFULNESS [None]
  - DECREASED APPETITE [None]
